FAERS Safety Report 9460709 (Version 1)
Quarter: 2013Q3

REPORT INFORMATION
  Report Type: Spontaneous
  Country: DE (occurrence: None)
  Receive Date: 20130813
  Receipt Date: 20130813
  Transmission Date: 20140515
  Serious: Yes (Other)
  Sender: FDA-Public Use
  Company Number: GER/GER/13/0033935

PATIENT
  Age: 41 Year
  Sex: Female

DRUGS (4)
  1. LAMOTRIGINE (LAMOTRIGINE) [Suspect]
     Indication: EPILEPSY
     Route: 048
     Dates: start: 20080211, end: 20081017
  2. MORPHINE [Suspect]
     Indication: PAIN
     Dosage: 12 MCG 1 IN 1 HOUR
     Route: 062
     Dates: start: 20080926, end: 20081015
  3. EUTHYROX [Suspect]
     Indication: HYPOTHYROIDISM
  4. FOLIC ACID [Concomitant]

REACTIONS (3)
  - Caesarean section [None]
  - Exposure during pregnancy [None]
  - Pain [None]
